APPROVED DRUG PRODUCT: ROSIGLITAZONE MALEATE AND GLIMEPIRIDE
Active Ingredient: GLIMEPIRIDE; ROSIGLITAZONE MALEATE
Strength: 4MG;4MG
Dosage Form/Route: TABLET;ORAL
Application: A078709 | Product #003
Applicant: TEVA PHARMACEUTICALS USA
Approved: Apr 1, 2016 | RLD: No | RS: No | Type: DISCN